FAERS Safety Report 8044007-4 (Version None)
Quarter: 2011Q4

REPORT INFORMATION
  Report Type: 
  Country: None (occurrence: None)
  Receive Date: 20111209
  Receipt Date: 20110928
  Transmission Date: 20120403
  Serious: No
  Sender: FDA-Public Use
  Company Number: 2011SP046045

PATIENT
  Age: 60 Year
  Sex: Male

DRUGS (2)
  1. VICTRELIS [Suspect]
     Indication: HEPATITIS C
     Dosage: 800 MG, TID, PO
     Route: 048
     Dates: start: 20110901
  2. SUBOXONE [Concomitant]

REACTIONS (4)
  - HAEMORRHAGIC DIATHESIS [None]
  - RED BLOOD CELL COUNT DECREASED [None]
  - FATIGUE [None]
  - CONTUSION [None]
